FAERS Safety Report 7997695-2 (Version None)
Quarter: 2011Q4

REPORT INFORMATION
  Report Type: 
  Country: None (occurrence: None)
  Receive Date: 20111221
  Receipt Date: 20111214
  Transmission Date: 20120403
  Serious: Yes (Other)
  Sender: FDA-Public Use
  Company Number: BE-ROCHE-1021479

PATIENT
  Sex: Female

DRUGS (4)
  1. MODURETIC 5-50 [Concomitant]
  2. VENORUTON (BELGIUM) [Concomitant]
  3. ACTEMRA [Suspect]
     Indication: RHEUMATOID ARTHRITIS
     Dates: end: 20111207
  4. PLAVIX [Concomitant]

REACTIONS (4)
  - HYPERTENSION [None]
  - DYSPNOEA [None]
  - DILATATION VENTRICULAR [None]
  - CARDIAC DISORDER [None]
